FAERS Safety Report 18945244 (Version 1)
Quarter: 2021Q1

REPORT INFORMATION
  Report Type: Spontaneous
  Country: US (occurrence: US)
  Receive Date: 20210226
  Receipt Date: 20210226
  Transmission Date: 20210420
  Serious: Yes (Hospitalization)
  Sender: FDA-Public Use
  Company Number: US-MYLANLABS-2021M1011428

PATIENT
  Age: 64 Year
  Sex: Female

DRUGS (1)
  1. IFOSFAMIDE. [Suspect]
     Active Substance: IFOSFAMIDE
     Indication: LEIOMYOSARCOMA
     Dosage: UNK, CYCLE 4 CYCLES
     Route: 065

REACTIONS (7)
  - Mucosal inflammation [Recovering/Resolving]
  - Acidosis [Recovering/Resolving]
  - Off label use [Unknown]
  - Blood electrolytes decreased [Recovering/Resolving]
  - Tachycardia [Recovering/Resolving]
  - Skin turgor decreased [Recovering/Resolving]
  - Nephrogenic diabetes insipidus [Recovered/Resolved]
